FAERS Safety Report 5691390-0 (Version None)
Quarter: 2008Q2

REPORT INFORMATION
  Report Type: 
  Country: None (occurrence: None)
  Receive Date: 20080402
  Receipt Date: 20080320
  Transmission Date: 20081010
  Serious: Yes (Hospitalization, Other)
  Sender: FDA-Public Use
  Company Number: PHHY2008CA03731

PATIENT
  Age: 60 Year
  Sex: Male

DRUGS (10)
  1. CELEXA [Concomitant]
     Dosage: 20 MG, QOD
     Dates: start: 20080122
  2. LITHIUM [Concomitant]
     Dosage: 600 MG, BID
  3. LITHIUM [Concomitant]
     Dosage: 500 MG, BID
  4. ZYPREXA [Concomitant]
     Dates: end: 20071210
  5. ZYPREXA [Concomitant]
     Dosage: 10 UG, UNK
     Dates: start: 20071211, end: 20071227
  6. SEROQUEL [Concomitant]
     Dosage: 600 MG, QD
     Dates: end: 20071126
  7. CLOZARIL [Suspect]
     Dosage: 450 MG, QD
     Dates: start: 20071120, end: 20071229
  8. CLOZARIL [Suspect]
     Dosage: 350 MG, QD
     Dates: start: 20071230, end: 20080113
  9. CLOZARIL [Suspect]
     Dosage: 250 MG, QD
     Dates: start: 20080114, end: 20080121
  10. CLOZARIL [Suspect]
     Dosage: 300 MG, QD
     Dates: start: 20080122

REACTIONS (6)
  - APATHY [None]
  - ASTHENIA [None]
  - DECREASED INTEREST [None]
  - DYSARTHRIA [None]
  - MANIA [None]
  - MUSCLE SPASMS [None]
